FAERS Safety Report 10387470 (Version 1)
Quarter: 2014Q1

REPORT INFORMATION
  Report Type: Spontaneous
  Country: US (occurrence: None)
  Receive Date: 20140306
  Receipt Date: 20140306
  Transmission Date: 20141002
  Serious: Yes (Hospitalization)
  Sender: FDA-Public Use
  Company Number: 163-21880-13103859

PATIENT
  Age: 67 Year
  Sex: Male

DRUGS (1)
  1. REVLIMID (LENALIDOMIDE) (25 MILLIGRAM, CAPSULES) [Suspect]
     Indication: PLASMA CELL MYELOMA
     Dosage: 21 IN 28D
     Dates: start: 20130923, end: 20131008

REACTIONS (3)
  - Hypotension [None]
  - Dehydration [None]
  - Pneumonia [None]
